FAERS Safety Report 9633604 (Version 1)
Quarter: 2013Q4

REPORT INFORMATION
  Report Type: Spontaneous
  Country: FR (occurrence: None)
  Receive Date: 20131017
  Receipt Date: 20131017
  Transmission Date: 20140711
  Serious: Yes (Hospitalization)
  Sender: FDA-Public Use
  Company Number: NSR_01287_2013

PATIENT
  Age: 50 Year
  Sex: 0

DRUGS (2)
  1. TRAMADOL [Suspect]
     Indication: PRODUCT USED FOR UNKNOWN INDICATION
     Dosage: DF
  2. INSULIN [Concomitant]

REACTIONS (3)
  - Hypoglycaemia [None]
  - Altered state of consciousness [None]
  - Loss of consciousness [None]
